FAERS Safety Report 15710950 (Version 1)
Quarter: 2018Q4

REPORT INFORMATION
  Report Type: Spontaneous
  Country: US (occurrence: US)
  Receive Date: 20181211
  Receipt Date: 20181211
  Transmission Date: 20190205
  Serious: No
  Sender: FDA-Public Use
  Company Number: US-DUCHESNAY INC.-2060033

PATIENT
  Age: 43 Year
  Sex: Female
  Weight: 49.09 kg

DRUGS (1)
  1. BONJESTA [Suspect]
     Active Substance: DOXYLAMINE SUCCINATE\PYRIDOXINE HYDROCHLORIDE
     Indication: MORNING SICKNESS
     Route: 048
     Dates: start: 20181203, end: 20181203

REACTIONS (5)
  - Vision blurred [Recovering/Resolving]
  - Euphoric mood [Recovering/Resolving]
  - Vomiting [Not Recovered/Not Resolved]
  - Vertigo [Recovering/Resolving]
  - Impaired driving ability [Recovering/Resolving]

NARRATIVE: CASE EVENT DATE: 20181203
